FAERS Safety Report 5376728-6 (Version None)
Quarter: 2007Q3

REPORT INFORMATION
  Report Type: 
  Country: None (occurrence: None)
  Receive Date: 20070703
  Receipt Date: 20070621
  Transmission Date: 20080115
  Serious: Yes (Death, Other)
  Sender: FDA-Public Use
  Company Number: US-BAYER-200712044BCC

PATIENT
  Sex: Male

DRUGS (1)
  1. ALKA SELTZER PLUS EFFERVESCENT NIGHT TIME COLD [Suspect]
     Indication: DRUG USE FOR UNKNOWN INDICATION

REACTIONS (4)
  - DRUG TOXICITY [None]
  - GUN SHOT WOUND [None]
  - HEAD INJURY [None]
  - VICTIM OF HOMICIDE [None]
